FAERS Safety Report 8803469 (Version 2)
Quarter: 2012Q4

REPORT INFORMATION
  Report Type: 
  Country: JP (occurrence: JP)
  Receive Date: 20120924
  Receipt Date: 20121004
  Transmission Date: 20130627
  Serious: Yes (Other)
  Sender: FDA-Public Use
  Company Number: JP-MERCK-1209JPN009082

PATIENT
  Age: 56 Year
  Sex: Male

DRUGS (2)
  1. PEGINTRON [Suspect]
     Indication: HEPATIC CIRRHOSIS
     Dosage: 100 Microgram, qw
     Route: 058
     Dates: start: 2007
  2. REBETOL [Suspect]
     Indication: HEPATIC CIRRHOSIS
     Dosage: 400 mg, bid
     Route: 048
     Dates: start: 2007

REACTIONS (1)
  - Pancytopenia [Unknown]
